FAERS Safety Report 4296871-2 (Version None)
Quarter: 2004Q1

REPORT INFORMATION
  Report Type: 
  Country: None (occurrence: None)
  Receive Date: 20040126
  Receipt Date: 20030919
  Transmission Date: 20041129
  Serious: No
  Sender: FDA-Public Use
  Company Number: USA030433731

PATIENT
  Age: 11 Year
  Sex: Male
  Weight: 29 kg

DRUGS (2)
  1. STRATTERA [Suspect]
     Indication: ATTENTION DEFICIT/HYPERACTIVITY DISORDER
     Dosage: 50 MG/1 IN THE MORNING
     Dates: start: 20030301
  2. CONCERTA [Concomitant]

REACTIONS (8)
  - AGGRESSION [None]
  - ANGER [None]
  - DECREASED APPETITE [None]
  - DYSPEPSIA [None]
  - EDUCATIONAL PROBLEM [None]
  - EMOTIONAL DISTRESS [None]
  - MOOD SWINGS [None]
  - SOCIAL AVOIDANT BEHAVIOUR [None]
